FAERS Safety Report 9639771 (Version 1)
Quarter: 2013Q4

REPORT INFORMATION
  Report Type: Spontaneous
  Country: US (occurrence: None)
  Receive Date: 20131021
  Receipt Date: 20131021
  Transmission Date: 20140711
  Serious: Yes (Other)
  Sender: FDA-Public Use
  Company Number: None

PATIENT
  Age: 25 Year
  Sex: Female
  Weight: 58.97 kg

DRUGS (1)
  1. NEXT CHOICE ONE DOSE [Suspect]

REACTIONS (5)
  - Eye swelling [None]
  - Ocular hyperaemia [None]
  - Eye irritation [None]
  - Pruritus [None]
  - Urticaria [None]
